FAERS Safety Report 22959672 (Version 2)
Quarter: 2024Q4

REPORT INFORMATION
  Report Type: Report from Study
  Country: CR (occurrence: CR)
  Receive Date: 20230920
  Receipt Date: 20241001
  Transmission Date: 20250114
  Serious: Yes (Other)
  Sender: NOVARTIS
  Company Number: CR-002147023-NVSC2023CR201737

PATIENT
  Sex: Male

DRUGS (3)
  1. SECUKINUMAB [Suspect]
     Active Substance: SECUKINUMAB
     Indication: Psoriatic arthropathy
     Dosage: 150 MG, QMO (ONCE A MONTH)
     Route: 058
     Dates: start: 20191031, end: 2023
  2. SECUKINUMAB [Suspect]
     Active Substance: SECUKINUMAB
     Dosage: 150 MG, QMO (ONCE A MONTH)
     Route: 058
     Dates: start: 20230906
  3. SULFASALAZINE [Suspect]
     Active Substance: SULFASALAZINE
     Indication: Product used for unknown indication
     Dosage: UNK
     Route: 065

REACTIONS (7)
  - Prostate cancer [Recovering/Resolving]
  - Metastases to lymph nodes [Unknown]
  - Hepatic cirrhosis [Unknown]
  - Spondylitis [Unknown]
  - Frustration tolerance decreased [Unknown]
  - Decreased immune responsiveness [Unknown]
  - Liver disorder [Unknown]

NARRATIVE: CASE EVENT DATE: 20200101
